FAERS Safety Report 6331216-5 (Version None)
Quarter: 2009Q3

REPORT INFORMATION
  Report Type: 
  Country: None (occurrence: None)
  Receive Date: 20090827
  Receipt Date: 20090821
  Transmission Date: 20100115
  Serious: Yes (Hospitalization, Disabling, Other)
  Sender: FDA-Public Use
  Company Number: US-MERCK-0805USA00929

PATIENT
  Age: 61 Year
  Sex: Female

DRUGS (2)
  1. FOSAMAX [Suspect]
     Indication: OSTEOPOROSIS
     Route: 048
     Dates: start: 20020215, end: 20030101
  2. [THERAPY UNSPECIFIED] [Concomitant]
     Indication: BLOOD CHOLESTEROL INCREASED
     Route: 065
     Dates: start: 20020101

REACTIONS (36)
  - ABDOMINAL DISTENSION [None]
  - ADVERSE DRUG REACTION [None]
  - BACK PAIN [None]
  - BRUXISM [None]
  - BURNING MOUTH SYNDROME [None]
  - CANDIDIASIS [None]
  - CHRONIC SINUSITIS [None]
  - COELIAC DISEASE [None]
  - CONSTIPATION [None]
  - COW'S MILK INTOLERANCE [None]
  - DEPRESSION [None]
  - DRUG HYPERSENSITIVITY [None]
  - DRY MOUTH [None]
  - DYSGEUSIA [None]
  - DYSPHAGIA [None]
  - EMOTIONAL DISTRESS [None]
  - GALLBLADDER DISORDER [None]
  - HEADACHE [None]
  - INSOMNIA [None]
  - LARYNGITIS [None]
  - MELANOCYTIC NAEVUS [None]
  - MEMORY IMPAIRMENT [None]
  - MYALGIA [None]
  - NASAL CONGESTION [None]
  - NASAL SEPTUM DEVIATION [None]
  - NAUSEA [None]
  - OSTEOMYELITIS CHRONIC [None]
  - OSTEONECROSIS [None]
  - PAIN IN JAW [None]
  - PERIODONTITIS [None]
  - SYNCOPE [None]
  - TEMPOROMANDIBULAR JOINT SYNDROME [None]
  - TONGUE COATED [None]
  - TRIGEMINAL NEURALGIA [None]
  - VOMITING [None]
  - WEIGHT DECREASED [None]
